FAERS Safety Report 20628468 (Version 1)
Quarter: 2022Q1

REPORT INFORMATION
  Report Type: Spontaneous
  Country: US (occurrence: None)
  Receive Date: 20220322
  Receipt Date: 20220322
  Transmission Date: 20220423
  Serious: Yes (Hospitalization)
  Sender: FDA-Public Use
  Company Number: None

PATIENT
  Age: 73 Year
  Sex: Male
  Weight: 86.3 kg

DRUGS (16)
  1. ENFORTUMAB VEDOTIN [Suspect]
     Active Substance: ENFORTUMAB VEDOTIN
     Indication: Bladder cancer
     Dosage: OTHER FREQUENCY : D1 + D8-21 DAY CYC;?
     Route: 041
     Dates: start: 20210624, end: 20220127
  2. PEMBROLIZUMAB [Suspect]
     Active Substance: PEMBROLIZUMAB
     Indication: Bladder cancer
     Dosage: FREQUENCY : EVERY 21 DAYS?
     Route: 041
     Dates: start: 20210624, end: 20220127
  3. PLAVIX [Concomitant]
     Dates: start: 20160601
  4. Aspirin [Concomitant]
     Dates: start: 20160601
  5. NORVASC [Concomitant]
     Dates: start: 20210831
  6. |mdur [Concomitant]
     Dates: start: 20220101
  7. SINGULAIR [Concomitant]
     Active Substance: MONTELUKAST SODIUM
     Dates: start: 20210321
  8. POTASSIUM CHLORIDE [Concomitant]
     Dates: start: 20160628
  9. HYDROCHLOROTHIAZIDE [Concomitant]
     Dates: start: 20160829
  10. LANTUS [Concomitant]
     Active Substance: INSULIN GLARGINE
     Dates: start: 20220211
  11. LOPRESSOR [Concomitant]
     Active Substance: METOPROLOL TARTRATE
     Dates: start: 20160101
  12. NESINA [Concomitant]
     Dates: start: 20210401
  13. LISINOPRIL [Concomitant]
     Active Substance: LISINOPRIL
     Dates: start: 20160101
  14. LIPITOR [Concomitant]
     Dates: start: 20160101
  15. LYRICA [Concomitant]
  16. JARDIANCE [Concomitant]
     Active Substance: EMPAGLIFLOZIN
     Dates: start: 20210101

REACTIONS (5)
  - Urinary tract obstruction [None]
  - Hydronephrosis [None]
  - Dehydration [None]
  - Vomiting [None]
  - Acute kidney injury [None]

NARRATIVE: CASE EVENT DATE: 20220301
